FAERS Safety Report 26170573 (Version 1)
Quarter: 2025Q4

REPORT INFORMATION
  Report Type: Spontaneous
  Country: US (occurrence: US)
  Receive Date: 20251217
  Receipt Date: 20251217
  Transmission Date: 20260118
  Serious: No
  Sender: ALVOGEN
  Company Number: US-ALVOGEN-2025096475

PATIENT
  Sex: Female

DRUGS (3)
  1. FENTANYL [Suspect]
     Active Substance: FENTANYL
     Indication: Product used for unknown indication
     Dosage: FIRST BOX, SHE LOST 2-3 PATCHES A BOX
  2. FENTANYL [Suspect]
     Active Substance: FENTANYL
     Indication: Product used for unknown indication
     Dosage: SECOND BOX, SHE LOST 2-3 PATCHES A BOX
  3. FENTANYL [Suspect]
     Active Substance: FENTANYL
     Indication: Product used for unknown indication
     Dosage: 25 MCG/H?EXPIRATION DATE: UU-AUG-2027?CURRENT BOX(3RD REFILL), PROBLEM WITH 3 PATCHES

REACTIONS (2)
  - Device malfunction [Unknown]
  - Device adhesion issue [Unknown]
